FAERS Safety Report 10184353 (Version 1)
Quarter: 2014Q2

REPORT INFORMATION
  Report Type: Spontaneous
  Country: US (occurrence: US)
  Receive Date: 20140520
  Receipt Date: 20140520
  Transmission Date: 20141212
  Serious: Yes (Death)
  Sender: FDA-Public Use
  Company Number: US-ROCHE-1404717

PATIENT
  Age: 74 Year
  Sex: Male
  Weight: 68.55 kg

DRUGS (10)
  1. XELODA [Suspect]
     Indication: BILE DUCT CANCER
     Dosage: EVERY MORNING 14 DAYS ON 7 DAYS OFF
     Route: 048
     Dates: start: 20140120
  2. XELODA [Suspect]
     Dosage: EVERY EVENING 14 DAYS ON 7 DAYS OFF
     Route: 048
     Dates: start: 20140120
  3. SOTALOL [Concomitant]
  4. CARVEDILOL [Concomitant]
     Route: 065
  5. DIGOXIN [Concomitant]
  6. LEVOTHYROXINE [Concomitant]
  7. WARFARIN [Concomitant]
  8. ASPIRIN [Concomitant]
  9. ZOLOFT [Concomitant]
  10. PRILOSEC [Concomitant]

REACTIONS (1)
  - Death [Fatal]
